FAERS Safety Report 4976273-3 (Version None)
Quarter: 2006Q2

REPORT INFORMATION
  Report Type: 
  Country: None (occurrence: None)
  Receive Date: 20060412
  Receipt Date: 20060403
  Transmission Date: 20061013
  Serious: Yes (Hospitalization)
  Sender: FDA-Public Use
  Company Number: S06-FRA-01359-01

PATIENT
  Age: 59 Year
  Sex: Male

DRUGS (2)
  1. MEMANTINE HCL [Suspect]
     Dates: start: 20050115
  2. GALANTAMINE HYDROBROMIDE [Suspect]
     Dates: start: 20050115

REACTIONS (9)
  - COLITIS ULCERATIVE [None]
  - DIVERTICULUM INTESTINAL [None]
  - DRUG INEFFECTIVE [None]
  - FLATULENCE [None]
  - GENERAL PHYSICAL HEALTH DETERIORATION [None]
  - HAEMATOCHEZIA [None]
  - PELVIC PAIN [None]
  - PROCTITIS ULCERATIVE [None]
  - WEIGHT DECREASED [None]
